FAERS Safety Report 5194810-3 (Version None)
Quarter: 2006Q4

REPORT INFORMATION
  Report Type: 
  Country: None (occurrence: None)
  Receive Date: 20061227
  Receipt Date: 20061219
  Transmission Date: 20070319
  Serious: Yes (Hospitalization)
  Sender: FDA-Public Use
  Company Number: CLOF-10342

PATIENT
  Age: 23 Year
  Sex: Male
  Weight: 63.95 kg

DRUGS (14)
  1. CLOFARABINE [Suspect]
     Indication: MYELOID LEUKAEMIA
     Dosage: 40 MG QD X 5 IV
     Route: 042
     Dates: start: 20060726, end: 20060730
  2. CLOFARABINE [Suspect]
     Indication: MYELOID LEUKAEMIA
     Dosage: 30 MG QD X 5 IV
     Route: 042
     Dates: start: 20060912, end: 20060916
  3. CLOFARABINE [Suspect]
     Indication: MYELOID LEUKAEMIA
     Dosage: 37 MG QD X 5 IV
     Route: 042
     Dates: start: 20061114, end: 20061118
  4. CYTARABINE [Suspect]
     Indication: MYELOID LEUKAEMIA
     Dosage: 2790 MG QD X 5 IV
     Route: 042
     Dates: start: 20060726, end: 20060730
  5. CYTARABINE [Suspect]
     Indication: MYELOID LEUKAEMIA
     Dosage: 2790 MG QD X 5 IV
     Route: 042
     Dates: start: 20060912, end: 20060916
  6. CYTARABINE [Suspect]
     Indication: MYELOID LEUKAEMIA
     Dosage: 1850 MG QD X 5 IV
     Route: 042
     Dates: start: 20061114, end: 20061118
  7. COUMADIN [Concomitant]
  8. K-DUR 10 [Concomitant]
  9. AVELOX [Concomitant]
  10. DIFLUCAN [Concomitant]
  11. ACYCLOVIR [Concomitant]
  12. ATIVAN [Concomitant]
  13. MAGNESIUM OXIDE [Concomitant]
  14. PHENERGAN [Concomitant]

REACTIONS (30)
  - ANAEMIA [None]
  - ASPERGILLOSIS [None]
  - BACTERAEMIA [None]
  - BACTERIAL INFECTION [None]
  - CATHETER RELATED INFECTION [None]
  - CONDITION AGGRAVATED [None]
  - ELECTROCARDIOGRAM T WAVE ABNORMAL [None]
  - ERYTHEMA [None]
  - FEBRILE NEUTROPENIA [None]
  - HEADACHE [None]
  - INTERNATIONAL NORMALISED RATIO DECREASED [None]
  - JOINT SWELLING [None]
  - LETHARGY [None]
  - LOBAR PNEUMONIA [None]
  - NAUSEA [None]
  - OEDEMA PERIPHERAL [None]
  - OSTEOMYELITIS [None]
  - PAIN IN EXTREMITY [None]
  - PANCYTOPENIA [None]
  - PLEURAL EFFUSION [None]
  - PNEUMONIA [None]
  - PULMONARY OEDEMA [None]
  - SEPSIS [None]
  - SINUS TACHYCARDIA [None]
  - SKIN LESION [None]
  - TACHYCARDIA [None]
  - TENDERNESS [None]
  - THERAPY NON-RESPONDER [None]
  - TRANSAMINASES INCREASED [None]
  - VOMITING [None]
